FAERS Safety Report 9095516 (Version 1)
Quarter: 2013Q1

REPORT INFORMATION
  Report Type: Spontaneous
  Country: US (occurrence: US)
  Receive Date: 20130219
  Receipt Date: 20130219
  Transmission Date: 20140127
  Serious: No
  Sender: FDA-Public Use
  Company Number: US-009507513-1302USA007821

PATIENT
  Sex: 0

DRUGS (6)
  1. ZOCOR [Suspect]
  2. CELEBREX [Suspect]
     Dosage: 1 CAP DAILY PRN
  3. NEURONTIN [Suspect]
     Dosage: 1 CAPSULE BEFORE BED
  4. NEXIUM [Concomitant]
     Indication: GASTROOESOPHAGEAL REFLUX DISEASE
     Dosage: 1 CAPSULE DAILY
  5. RANITIDINE HYDROCHLORIDE [Concomitant]
     Indication: DYSPEPSIA
     Dosage: 1 TAB AT BED TIME AS NEEDED
  6. LAMICTAL [Concomitant]
     Indication: AFFECTIVE DISORDER
     Dosage: 1 TAB ONCE DAILY AS NEEDED

REACTIONS (3)
  - Neuralgia [Unknown]
  - Dyspepsia [Unknown]
  - Hypersensitivity [Unknown]
